FAERS Safety Report 15394184 (Version 1)
Quarter: 2018Q3

REPORT INFORMATION
  Report Type: Report from Study
  Country: None (occurrence: EC)
  Receive Date: 20180918
  Receipt Date: 20180918
  Transmission Date: 20181010
  Serious: Yes (Other)
  Sender: FDA-Public Use
  Company Number: EC-ABBVIE-18S-047-2485386-00

PATIENT
  Age: 70 Year
  Sex: Female

DRUGS (1)
  1. ZEMPLAR [Suspect]
     Active Substance: PARICALCITOL
     Indication: HYPERPARATHYROIDISM SECONDARY
     Route: 042
     Dates: start: 20170801

REACTIONS (1)
  - Abdominal mass [Recovering/Resolving]

NARRATIVE: CASE EVENT DATE: 20180912
